FAERS Safety Report 17250787 (Version 2)
Quarter: 2020Q3

REPORT INFORMATION
  Report Type: Spontaneous
  Country: FR (occurrence: FR)
  Receive Date: 20200109
  Receipt Date: 20200923
  Transmission Date: 20201102
  Serious: Yes (Other)
  Sender: FDA-Public Use
  Company Number: FR-TEVA-2019-FR-1130221

PATIENT
  Age: 51 Year
  Sex: Male
  Weight: 80 kg

DRUGS (6)
  1. PAROXETINE. [Concomitant]
     Active Substance: PAROXETINE
     Indication: DEPRESSION
     Dosage: UNIT DOSE 20MG
     Route: 048
     Dates: start: 2017, end: 20171122
  2. DULOXETINE BASE [Concomitant]
     Active Substance: DULOXETINE
     Indication: DEPRESSION
     Dosage: UNIT DOSE 60MG
     Route: 048
     Dates: start: 20171122, end: 2019
  3. DIAZEPAM. [Concomitant]
     Active Substance: DIAZEPAM
     Indication: DEPRESSION
     Dosage: UNIT DOSE 5MG
     Route: 048
     Dates: end: 201904
  4. UROREC [Concomitant]
     Active Substance: SILODOSIN
     Indication: MICTURITION DISORDER
     Dosage: UNKNOWN
     Route: 048
     Dates: start: 201902
  5. FENOFIBRATE. [Suspect]
     Active Substance: FENOFIBRATE
     Indication: DYSLIPIDAEMIA
     Route: 048
     Dates: end: 201910
  6. AOTAL 333 MG, COMPRIME ENROBE GASTRO?RESISTANT [Concomitant]
     Indication: ALCOHOL USE DISORDER
     Route: 048
     Dates: start: 201711, end: 201801

REACTIONS (3)
  - Retrograde ejaculation [Not Recovered/Not Resolved]
  - Erectile dysfunction [Not Recovered/Not Resolved]
  - Libido disorder [Recovered/Resolved]

NARRATIVE: CASE EVENT DATE: 2018
